FAERS Safety Report 20750101 (Version 1)
Quarter: 2022Q2

REPORT INFORMATION
  Report Type: Spontaneous
  Country: IN (occurrence: IN)
  Receive Date: 20220426
  Receipt Date: 20220426
  Transmission Date: 20220721
  Serious: Yes (Hospitalization, Other)
  Sender: FDA-Public Use
  Company Number: IN-SA-2022SA133208

PATIENT
  Age: 64 Year
  Sex: Female
  Weight: 65 kg

DRUGS (12)
  1. ISONIAZID [Suspect]
     Active Substance: ISONIAZID
     Indication: Tuberculosis of central nervous system
     Dosage: 300 MG, QD
  2. RIFAMPIN [Suspect]
     Active Substance: RIFAMPIN
     Indication: Tuberculosis of central nervous system
     Dosage: 600 MG, QD
  3. PYRAZINAMIDE [Concomitant]
     Active Substance: PYRAZINAMIDE
     Indication: Tuberculosis of central nervous system
     Dosage: 1500 MG, QD
  4. ETHAMBUTOL [Concomitant]
     Active Substance: ETHAMBUTOL HYDROCHLORIDE
     Indication: Tuberculosis of central nervous system
     Dosage: 900 MG, QD
  5. METFORMIN [Concomitant]
     Active Substance: METFORMIN HYDROCHLORIDE
     Indication: Diabetes mellitus
     Dosage: 1000 MG, QD
  6. GLIMEPIRIDE [Concomitant]
     Active Substance: GLIMEPIRIDE
     Indication: Diabetes mellitus
     Dosage: 2 MG, QD
  7. AMLODIPINE [Concomitant]
     Active Substance: AMLODIPINE BESYLATE
     Indication: Hypertension
     Dosage: 10 MG, QD
  8. PIPERACILLIN AND TAZOBACTAM [Concomitant]
     Active Substance: PIPERACILLIN SODIUM\TAZOBACTAM SODIUM
     Indication: Bacterial infection
     Dosage: UNK
  9. INSULIN NOS [Concomitant]
     Active Substance: INSULIN NOS
     Indication: Diabetes mellitus
     Route: 058
  10. PYRIDOXINE [Concomitant]
     Active Substance: PYRIDOXINE
     Indication: Prophylaxis
     Dosage: 20 MG, QD
  11. PYRIDOXINE [Concomitant]
     Active Substance: PYRIDOXINE
     Dosage: 100 MG, QD
  12. PYRIDOXINE [Concomitant]
     Active Substance: PYRIDOXINE
     Dosage: 20 MG, QD

REACTIONS (6)
  - Delirium [Recovering/Resolving]
  - Slow speech [Recovering/Resolving]
  - Disorientation [Recovering/Resolving]
  - Disturbance in attention [Recovering/Resolving]
  - Slow response to stimuli [Recovering/Resolving]
  - Thrombocytopenia [Recovering/Resolving]
